FAERS Safety Report 6092582-1 (Version None)
Quarter: 2009Q1

REPORT INFORMATION
  Report Type: 
  Country: None (occurrence: None)
  Receive Date: 20090225
  Receipt Date: 20081006
  Transmission Date: 20090719
  Serious: Yes (Disabling)
  Sender: FDA-Public Use
  Company Number: US-BRISTOL-MYERS SQUIBB COMPANY-14076665

PATIENT
  Age: 45 Year
  Sex: Female
  Weight: 70 kg

DRUGS (6)
  1. KENALOG [Suspect]
     Indication: HOUSE DUST ALLERGY
     Route: 030
     Dates: start: 20070427
  2. KENALOG [Suspect]
     Indication: MYCOTIC ALLERGY
     Route: 030
     Dates: start: 20070427
  3. KENALOG [Suspect]
     Indication: SEASONAL ALLERGY
     Route: 030
     Dates: start: 20070427
  4. KENALOG [Suspect]
     Indication: ALLERGY TO ANIMAL
     Route: 030
     Dates: start: 20070427
  5. SYNTHROID [Concomitant]
  6. ESTROGENIC SUBSTANCE [Concomitant]

REACTIONS (2)
  - SKIN ATROPHY [None]
  - SKIN DISCOLOURATION [None]
